FAERS Safety Report 12085846 (Version 1)
Quarter: 2016Q1

REPORT INFORMATION
  Report Type: Spontaneous
  Country: US (occurrence: US)
  Receive Date: 20160217
  Receipt Date: 20160217
  Transmission Date: 20160526
  Serious: Yes (Other)
  Sender: FDA-Public Use
  Company Number: US-TAKEDA-2015TUS000895

PATIENT
  Age: 66 Year
  Sex: Female

DRUGS (4)
  1. PREVACID [Suspect]
     Active Substance: LANSOPRAZOLE
     Indication: DYSPEPSIA
  2. PREVACID [Suspect]
     Active Substance: LANSOPRAZOLE
     Indication: HIATUS HERNIA
     Dosage: 15 MG, QD
     Route: 048
     Dates: end: 2014
  3. NEXIUM [Concomitant]
     Active Substance: ESOMEPRAZOLE MAGNESIUM
     Dosage: UNK
  4. CORTIZONE                          /00028601/ [Concomitant]
     Active Substance: HYDROCORTISONE

REACTIONS (5)
  - Incorrect drug administration duration [Recovered/Resolved]
  - Off label use [Recovered/Resolved]
  - Arthritis [Unknown]
  - Spinal disorder [Unknown]
  - Therapeutic response changed [Recovered/Resolved]
